FAERS Safety Report 7604581-6 (Version None)
Quarter: 2011Q3

REPORT INFORMATION
  Report Type: 
  Country: None (occurrence: None)
  Receive Date: 20110712
  Receipt Date: 20110706
  Transmission Date: 20111222
  Serious: Yes (Hospitalization)
  Sender: FDA-Public Use
  Company Number: JP-PFIZER INC-2011132569

PATIENT
  Age: 70 Year
  Sex: Male

DRUGS (4)
  1. AMIODARONE HCL [Suspect]
     Dosage: 1.25 MG/ML; INFUSION RATE 10ML/MIN
     Route: 042
     Dates: start: 20110607
  2. AMIODARONE HCL [Suspect]
     Dosage: 1.5MG/ML; INFUSION RATE 33ML/HR
     Route: 042
     Dates: start: 20110609
  3. AMIODARONE HCL [Suspect]
     Indication: ATRIAL FIBRILLATION
     Dosage: 200 MG, 1X/DAY
     Route: 048
     Dates: start: 20110610, end: 20110617
  4. AMIODARONE HCL [Suspect]
     Dosage: 1.5MG/ML; INFUSION RATE 17ML/HR
     Route: 042
     Dates: start: 20110607, end: 20110613

REACTIONS (1)
  - LUNG DISORDER [None]
